FAERS Safety Report 17279100 (Version 1)
Quarter: 2020Q1

REPORT INFORMATION
  Report Type: Report from Study
  Country: US (occurrence: US)
  Receive Date: 20200116
  Receipt Date: 20200116
  Transmission Date: 20200409
  Serious: Yes (Hospitalization)
  Sender: FDA-Public Use
  Company Number: US-TEVA-2020-US-1169438

PATIENT
  Age: 71 Year
  Sex: Female

DRUGS (17)
  1. VITAMIN E OIL [Concomitant]
  2. COPAXONE [Suspect]
     Active Substance: GLATIRAMER ACETATE
     Indication: MULTIPLE SCLEROSIS
     Dosage: COPAXONE 40MG THRICE A WEEK
     Route: 058
     Dates: start: 20180130
  3. MECLIZINE [Concomitant]
     Active Substance: MECLIZINE HYDROCHLORIDE
  4. LISINOPRIL. [Concomitant]
     Active Substance: LISINOPRIL
  5. TRIAMTERENE POW [Concomitant]
  6. TRIAMI/HCTZ TAB [Concomitant]
  7. LOLEPREDNOL [Concomitant]
     Dosage: LOLEPREDNOL SUS 0.5%
  8. PROBIOTIC CAP PEARLS [Concomitant]
  9. ASPIRIN. [Concomitant]
     Active Substance: ASPIRIN
     Dosage: ASPIRIN LOW LAB 81 MG EC
  10. CLONAZEPAM. [Concomitant]
     Active Substance: CLONAZEPAM
  11. CLOPIDOGREL [Concomitant]
     Active Substance: CLOPIDOGREL BISULFATE
  12. GABAPENTIN. [Concomitant]
     Active Substance: GABAPENTIN
  13. VERAPAMIL [Concomitant]
     Active Substance: VERAPAMIL HYDROCHLORIDE
     Dosage: VERAPAMIL TAB 240 MG ER
  14. VITAMIN D3 LAB 50000 UNT [Concomitant]
     Dosage: VITAMIN D3 LAB 50000 UNT
  15. MULTIVIT/FL [Concomitant]
     Dosage: MULTIVIT/FL CHW 0.25MG
  16. PAROXETINE. [Concomitant]
     Active Substance: PAROXETINE
  17. POLYMYXIN B / SOL TRIMETHP [Concomitant]

REACTIONS (1)
  - Surgery [Not Recovered/Not Resolved]

NARRATIVE: CASE EVENT DATE: 20191209
